FAERS Safety Report 17882631 (Version 4)
Quarter: 2020Q3

REPORT INFORMATION
  Report Type: Report from Study
  Country: US (occurrence: US)
  Receive Date: 20200610
  Receipt Date: 20200831
  Transmission Date: 20201103
  Serious: Yes (Hospitalization, Other)
  Sender: FDA-Public Use
  Company Number: US-GILEAD-2020-0471665

PATIENT
  Age: 23 Year
  Sex: Male

DRUGS (25)
  1. AZTREONAM LYSINE [Suspect]
     Active Substance: AZTREONAM LYSINE
     Indication: CYSTIC FIBROSIS LUNG
     Dosage: 75 MG, TID, FOR 28 DAYS ON AND 28 DAYS OFF
     Route: 055
     Dates: start: 201910
  2. PROPRANOLOL [Concomitant]
     Active Substance: PROPRANOLOL HYDROCHLORIDE
  3. CONCERTA [Concomitant]
     Active Substance: METHYLPHENIDATE HYDROCHLORIDE
  4. PROAIR [FLUTICASONE PROPIONATE] [Concomitant]
     Active Substance: FLUTICASONE PROPIONATE
  5. COMBIVENT RESPIMAT [Concomitant]
     Active Substance: ALBUTEROL SULFATE\IPRATROPIUM BROMIDE
  6. CIPROFLOXACIN HYDROCHLORIDE. [Concomitant]
     Active Substance: CIPROFLOXACIN HYDROCHLORIDE
  7. NICOTROL [Concomitant]
     Active Substance: NICOTINE
  8. TOBRAMYCIN. [Concomitant]
     Active Substance: TOBRAMYCIN
  9. PULMOZYME [Concomitant]
     Active Substance: DORNASE ALFA
  10. GABAPENTIN. [Concomitant]
     Active Substance: GABAPENTIN
  11. VITAMIN D [VITAMIN D NOS] [Concomitant]
     Active Substance: VITAMIN D NOS
  12. DEKAS ESSENTIAL [Concomitant]
  13. ABILIFY [Concomitant]
     Active Substance: ARIPIPRAZOLE
  14. FLUTICASONE PROPIONATE. [Concomitant]
     Active Substance: FLUTICASONE PROPIONATE
  15. CREON [Concomitant]
     Active Substance: PANCRELIPASE AMYLASE\PANCRELIPASE LIPASE\PANCRELIPASE PROTEASE
  16. TRIKAFTA [Suspect]
     Active Substance: ELEXACAFTOR\IVACAFTOR\TEZACAFTOR
     Indication: PRODUCT USED FOR UNKNOWN INDICATION
     Route: 065
  17. ASPIRIN [ACETYLSALICYLIC ACID] [Concomitant]
     Active Substance: ASPIRIN
  18. TYLENOL [Concomitant]
     Active Substance: ACETAMINOPHEN
  19. VITAMIN E [Concomitant]
     Active Substance: .ALPHA.-TOCOPHEROL
  20. PULMICORT TURBUHALER [Concomitant]
     Active Substance: BUDESONIDE
  21. AZITHROMYCIN ANHYDROUS. [Concomitant]
     Active Substance: AZITHROMYCIN ANHYDROUS
  22. BENADRYL [Concomitant]
     Active Substance: DIPHENHYDRAMINE HYDROCHLORIDE
  23. EPIPEN [Concomitant]
     Active Substance: EPINEPHRINE
  24. DIAZEPAM. [Concomitant]
     Active Substance: DIAZEPAM
  25. AZELASTINE HYDROCHLORIDE. [Concomitant]
     Active Substance: AZELASTINE HYDROCHLORIDE

REACTIONS (9)
  - Back pain [Unknown]
  - Diarrhoea [Unknown]
  - Cystic fibrosis respiratory infection suppression [Not Recovered/Not Resolved]
  - Insomnia [Not Recovered/Not Resolved]
  - Nausea [Unknown]
  - Hyperchlorhydria [Unknown]
  - Infective pulmonary exacerbation of cystic fibrosis [Unknown]
  - Headache [Unknown]
  - Abdominal discomfort [Not Recovered/Not Resolved]
